FAERS Safety Report 22028727 (Version 1)
Quarter: 2023Q1

REPORT INFORMATION
  Report Type: Spontaneous
  Country: US (occurrence: None)
  Receive Date: 20230220
  Receipt Date: 20230220
  Transmission Date: 20230417
  Serious: No
  Sender: FDA-Public Use
  Company Number: None

PATIENT
  Age: 32 Year
  Sex: Female
  Weight: 73.48 kg

DRUGS (1)
  1. RINVOQ [Suspect]
     Active Substance: UPADACITINIB
     Indication: Spondyloarthropathy
     Dosage: FREQUENCY : DAILY;?
     Route: 048
     Dates: start: 201912

REACTIONS (3)
  - Ovarian disorder [None]
  - Surgery [None]
  - Intentional dose omission [None]
